FAERS Safety Report 12205146 (Version 13)
Quarter: 2017Q3

REPORT INFORMATION
  Report Type: Spontaneous
  Country: US (occurrence: US)
  Receive Date: 20160323
  Receipt Date: 20170824
  Transmission Date: 20171127
  Serious: Yes (Other)
  Sender: FDA-Public Use
  Company Number: US-PFIZER INC-2016156364

PATIENT
  Age: 73 Year
  Sex: Female
  Weight: 82.99 kg

DRUGS (10)
  1. IBRANCE [Suspect]
     Active Substance: PALBOCICLIB
     Dosage: 100 MG, CYCLIC (DAYS 1-21 Q 28 DAYS)
     Route: 048
     Dates: start: 20160226, end: 201708
  2. IBRANCE [Suspect]
     Active Substance: PALBOCICLIB
     Dosage: 125 MG, CYCLIC, (DAY 1-21 EVERY 28 DAYS)
     Route: 048
     Dates: start: 201610, end: 20170425
  3. IBRANCE [Suspect]
     Active Substance: PALBOCICLIB
     Dosage: 125 MG, CYCLIC, (DAYS 1-21 Q28 DAYS)
     Route: 048
  4. IBRANCE [Suspect]
     Active Substance: PALBOCICLIB
     Indication: BREAST CANCER METASTATIC
     Dosage: 125 MG, CYCLIC (DAYS 1-21 Q28 DAYS)
     Route: 048
     Dates: start: 20160225, end: 201610
  5. IBRANCE [Suspect]
     Active Substance: PALBOCICLIB
     Dosage: 100 MG, UNK
     Dates: start: 2017
  6. IBRANCE [Suspect]
     Active Substance: PALBOCICLIB
     Dosage: 125 MG, CYCLIC (D1-21 Q 28 DAYS)
     Route: 048
  7. IBRANCE [Suspect]
     Active Substance: PALBOCICLIB
     Dosage: 125 MG, CYCLIC (DAYS 1-21 Q28 DAYS)
     Route: 048
  8. IBRANCE [Suspect]
     Active Substance: PALBOCICLIB
     Dosage: 100 MG, CYCLIC (DAY 1-21 Q 28 DAYS)
     Route: 048
     Dates: start: 20160226, end: 20170626
  9. IBRANCE [Suspect]
     Active Substance: PALBOCICLIB
     Dosage: 125 MG, CYCLIC (D1-21 Q 28 DAYS)
     Route: 048
  10. IBRANCE [Suspect]
     Active Substance: PALBOCICLIB
     Dosage: 100 MG, CYCLIC [DAILY FOR 21 DAYS, OFF 7 DAYS]
     Route: 048
     Dates: start: 20160226, end: 20170818

REACTIONS (15)
  - Arthralgia [Unknown]
  - Cough [Not Recovered/Not Resolved]
  - Abdominal discomfort [Unknown]
  - Platelet count decreased [Unknown]
  - Neutropenia [Unknown]
  - Neoplasm progression [Unknown]
  - Flatulence [Unknown]
  - Joint effusion [Unknown]
  - Muscle spasms [Unknown]
  - Lip pain [Unknown]
  - Constipation [Not Recovered/Not Resolved]
  - White blood cell count decreased [Recovered/Resolved]
  - Oral pain [Unknown]
  - Cheilitis [Unknown]
  - Post procedural persistent drain fluid [Unknown]

NARRATIVE: CASE EVENT DATE: 2016
